FAERS Safety Report 24630251 (Version 1)
Quarter: 2024Q4

REPORT INFORMATION
  Report Type: Spontaneous
  Country: US (occurrence: US)
  Receive Date: 20241118
  Receipt Date: 20241118
  Transmission Date: 20250114
  Serious: Yes (Hospitalization)
  Sender: MERCK
  Company Number: US-009507513-2411USA004304

PATIENT
  Sex: Female
  Weight: 81.6 kg

DRUGS (13)
  1. WINREVAIR [Suspect]
     Active Substance: SOTATERCEPT-CSRK
     Indication: Product used for unknown indication
  2. REMODULIN [Suspect]
     Active Substance: TREPROSTINIL
     Indication: Pulmonary arterial hypertension
     Dosage: 0.103 MICROGRAM PER KILOGRAM
     Route: 042
     Dates: start: 20221031
  3. PREGABALIN [Concomitant]
     Active Substance: PREGABALIN
  4. MIDODRINE HYDROCHLORIDE [Concomitant]
     Active Substance: MIDODRINE HYDROCHLORIDE
  5. OMEPRAZOLE [Concomitant]
     Active Substance: OMEPRAZOLE
  6. TADALAFIL [Concomitant]
     Active Substance: TADALAFIL
  7. ELIQUIS [Concomitant]
     Active Substance: APIXABAN
  8. PREDNISONE [Concomitant]
     Active Substance: PREDNISONE
  9. COENZYME Q10 [Concomitant]
     Active Substance: DIETARY SUPPLEMENT\UBIDECARENONE
  10. IRON [Concomitant]
     Active Substance: IRON
  11. OXYGEN [Concomitant]
     Active Substance: OXYGEN
  12. SPIRONOLACTONE [Concomitant]
     Active Substance: SPIRONOLACTONE
  13. TORSEMIDE [Concomitant]
     Active Substance: TORSEMIDE

REACTIONS (3)
  - Hypervolaemia [Unknown]
  - Dyspnoea [Unknown]
  - Dizziness [Unknown]
